FAERS Safety Report 9960414 (Version 1)
Quarter: 2014Q1

REPORT INFORMATION
  Report Type: Report from Study
  Country: US (occurrence: US)
  Receive Date: 20140305
  Receipt Date: 20140305
  Transmission Date: 20141002
  Serious: No
  Sender: FDA-Public Use
  Company Number: US-ABBVIE-13P-163-1107597-00

PATIENT
  Age: 78 Year
  Sex: Female

DRUGS (11)
  1. HUMIRA [Suspect]
     Indication: COLITIS ULCERATIVE
     Dates: start: 20130125
  2. SYNTHROID [Concomitant]
     Indication: THYROID DISORDER
     Dosage: .15 MG ALTERNATING EOD WITH .137 MG, ONE A DAY
  3. ATACAND [Concomitant]
     Indication: BLOOD PRESSURE
  4. HYDROCHLOROTHIAZIDE [Concomitant]
     Indication: BLOOD PRESSURE
  5. VITAMIN [Concomitant]
     Indication: PRODUCT USED FOR UNKNOWN INDICATION
  6. CALCIUM [Concomitant]
     Indication: MINERAL SUPPLEMENTATION
  7. POTASSIUM CHLORIDE [Concomitant]
     Indication: MINERAL SUPPLEMENTATION
  8. CORT ENEMA SUPPOSITORY [Concomitant]
     Indication: COLITIS ULCERATIVE
     Dosage: 1 AT BEDTIME
  9. PREVACID [Concomitant]
     Indication: DYSPEPSIA
     Dosage: OVER THE COUNTER
  10. FLORASTOR [Concomitant]
     Indication: SUPPLEMENTATION THERAPY
     Dosage: PROBIOTIC
  11. CO Q10 [Concomitant]
     Indication: SUPPLEMENTATION THERAPY

REACTIONS (3)
  - Malaise [Recovering/Resolving]
  - Cough [Recovering/Resolving]
  - Dysphonia [Recovering/Resolving]
